FAERS Safety Report 10527751 (Version 1)
Quarter: 2014Q4

REPORT INFORMATION
  Report Type: Spontaneous
  Country: US (occurrence: None)
  Receive Date: 20141017
  Receipt Date: 20141017
  Transmission Date: 20150528
  Serious: Yes (Hospitalization)
  Sender: FDA-Public Use
  Company Number: None

PATIENT
  Age: 47 Year
  Sex: Male
  Weight: 109.9 kg

DRUGS (1)
  1. TRAMADOL [Suspect]
     Active Substance: TRAMADOL
     Indication: PAIN
     Dosage: MG PO
     Route: 048
     Dates: start: 20140902, end: 20140918

REACTIONS (3)
  - Generalised tonic-clonic seizure [None]
  - Depressed level of consciousness [None]
  - Postictal state [None]

NARRATIVE: CASE EVENT DATE: 20140918
